FAERS Safety Report 21885730 (Version 2)
Quarter: 2024Q4

REPORT INFORMATION
  Report Type: Spontaneous
  Country: BR (occurrence: BR)
  Receive Date: 20230119
  Receipt Date: 20241129
  Transmission Date: 20250115
  Serious: Yes (Other)
  Sender: EMD SERONO INC
  Company Number: BR-Merck Healthcare KGaA-9377518

PATIENT
  Sex: Male

DRUGS (3)
  1. SAIZEN [Suspect]
     Active Substance: SOMATROPIN
     Indication: Weight decreased
  2. SAIZEN [Suspect]
     Active Substance: SOMATROPIN
     Indication: Muscle building therapy
  3. TESTOSTERONE [Suspect]
     Active Substance: TESTOSTERONE
     Indication: Androgen deficiency
     Dosage: ONE AMPOULE EVERY 10 DAYS

REACTIONS (5)
  - Cushing^s syndrome [Recovering/Resolving]
  - Off label use [Unknown]
  - Expired device used [Unknown]
  - Device issue [Unknown]
  - Counterfeit product administered [Unknown]
